FAERS Safety Report 19246065 (Version 1)
Quarter: 2021Q2

REPORT INFORMATION
  Report Type: Spontaneous
  Country: US (occurrence: US)
  Receive Date: 20210511
  Receipt Date: 20210511
  Transmission Date: 20210717
  Serious: No
  Sender: FDA-Public Use
  Company Number: None

PATIENT
  Age: 56 Year
  Sex: Female
  Weight: 78.3 kg

DRUGS (4)
  1. METFORMIN [Concomitant]
     Active Substance: METFORMIN HYDROCHLORIDE
     Dates: start: 20190102
  2. ACTEMRA [Suspect]
     Active Substance: TOCILIZUMAB
     Indication: RHEUMATOID ARTHRITIS
     Dosage: ?          OTHER FREQUENCY:Q 2 WEEKS;?
     Route: 058
     Dates: start: 20210301, end: 20210402
  3. DAPSONE. [Concomitant]
     Active Substance: DAPSONE
     Dates: start: 20200101
  4. TRAMADOL. [Concomitant]
     Active Substance: TRAMADOL
     Dates: start: 20191212

REACTIONS (1)
  - Amnesia [None]

NARRATIVE: CASE EVENT DATE: 20210401
